FAERS Safety Report 9089446 (Version 1)
Quarter: 2013Q1

REPORT INFORMATION
  Report Type: Spontaneous
  Country: US (occurrence: US)
  Receive Date: 20130201
  Receipt Date: 20130201
  Transmission Date: 20140127
  Serious: No
  Sender: FDA-Public Use
  Company Number: US-PFIZER INC-2013033031

PATIENT
  Age: 15 Year
  Sex: Male
  Weight: 77.1 kg

DRUGS (4)
  1. GENOTROPIN [Suspect]
     Indication: BLOOD GROWTH HORMONE ABNORMAL
     Dosage: 1.2 MG, 1X/DAY
  2. SYNTHROID [Concomitant]
     Dosage: UNK
  3. HYDROCORTISONE [Concomitant]
     Dosage: UNK
  4. FISH OIL [Concomitant]
     Dosage: UNK

REACTIONS (2)
  - Blood corticotrophin abnormal [Unknown]
  - Appetite disorder [Unknown]
